FAERS Safety Report 25103946 (Version 1)
Quarter: 2025Q1

REPORT INFORMATION
  Report Type: Spontaneous
  Country: US (occurrence: US)
  Receive Date: 20250321
  Receipt Date: 20250321
  Transmission Date: 20250408
  Serious: No
  Sender: ROCHE
  Company Number: US-ROCHE-10000233524

PATIENT
  Sex: Female

DRUGS (1)
  1. XOLAIR [Suspect]
     Active Substance: OMALIZUMAB
     Indication: Asthma
     Dosage: THERAPY WAS ONGOING?STRENGTH: 300MG/ML
     Route: 058
     Dates: start: 202405

REACTIONS (2)
  - Asthma [Unknown]
  - Off label use [Unknown]
